FAERS Safety Report 11148932 (Version 1)
Quarter: 2015Q2

REPORT INFORMATION
  Report Type: Report from Study
  Country: US (occurrence: US)
  Receive Date: 20150529
  Receipt Date: 20150529
  Transmission Date: 20150821
  Serious: Yes (Disabling)
  Sender: FDA-Public Use
  Company Number: US-SA-2014SA080716

PATIENT
  Age: 65 Year
  Sex: Female

DRUGS (21)
  1. AUBAGIO [Suspect]
     Active Substance: TERIFLUNOMIDE
     Indication: PROGRESSIVE MULTIPLE SCLEROSIS
     Route: 048
     Dates: end: 20150301
  2. PROZAC [Concomitant]
     Active Substance: FLUOXETINE HYDROCHLORIDE
  3. METOPROLOL [Concomitant]
     Active Substance: METOPROLOL
  4. CYMBALTA [Concomitant]
     Active Substance: DULOXETINE HYDROCHLORIDE
  5. VITAMIN D [Concomitant]
     Active Substance: CHOLECALCIFEROL
  6. BACLOFEN. [Concomitant]
     Active Substance: BACLOFEN
     Dosage: FREQUENCY: UPTO 6 TIMES A DAY
  7. GABAPENTIN. [Concomitant]
     Active Substance: GABAPENTIN
     Dosage: FREQUENCY: ONCE IN THE MORNING
  8. FISH OIL [Concomitant]
     Active Substance: FISH OIL
  9. AUBAGIO [Suspect]
     Active Substance: TERIFLUNOMIDE
     Indication: PROGRESSIVE MULTIPLE SCLEROSIS
     Route: 065
     Dates: start: 20130609, end: 20130709
  10. COPAXONE [Concomitant]
     Active Substance: GLATIRAMER ACETATE
     Dates: start: 20120601, end: 20130608
  11. NORVASC [Concomitant]
     Active Substance: AMLODIPINE BESYLATE
  12. LASIX [Concomitant]
     Active Substance: FUROSEMIDE
  13. DITROPAN XL [Concomitant]
     Active Substance: OXYBUTYNIN CHLORIDE
  14. PANTHENOL/RETINOL/THIAMINE HYDROCHLORIDE/ASCORBIC ACID/ERGOCALCIFEROL/FOLIC ACID/RIBOFLAVIN/NICOTINA [Concomitant]
  15. VITAMIN D/CALCIUM [Concomitant]
  16. AUBAGIO [Suspect]
     Active Substance: TERIFLUNOMIDE
     Indication: PROGRESSIVE MULTIPLE SCLEROSIS
     Route: 048
     Dates: start: 20120815
  17. GABAPENTIN. [Concomitant]
     Active Substance: GABAPENTIN
     Dosage: FREQUENCY: TWICE, 2 PM AND 10 PM
  18. ISOSORBIDE MONONITRATE. [Concomitant]
     Active Substance: ISOSORBIDE MONONITRATE
  19. LOSARTAN [Concomitant]
     Active Substance: LOSARTAN
  20. AUBAGIO [Suspect]
     Active Substance: TERIFLUNOMIDE
     Indication: PROGRESSIVE MULTIPLE SCLEROSIS
     Route: 048
     Dates: start: 20130710, end: 20140611
  21. HYDRALAZINE [Concomitant]
     Active Substance: HYDRALAZINE HYDROCHLORIDE

REACTIONS (7)
  - Pyrexia [Recovered/Resolved]
  - Hemiparesis [Not Recovered/Not Resolved]
  - Asthenia [Not Recovered/Not Resolved]
  - Unevaluable event [Unknown]
  - Off label use [Unknown]
  - Dysgraphia [Not Recovered/Not Resolved]
  - Coordination abnormal [Not Recovered/Not Resolved]

NARRATIVE: CASE EVENT DATE: 20140525
